FAERS Safety Report 10436368 (Version 1)
Quarter: 2014Q3

REPORT INFORMATION
  Report Type: Spontaneous
  Country: US (occurrence: US)
  Receive Date: 20140908
  Receipt Date: 20140908
  Transmission Date: 20150326
  Serious: No
  Sender: FDA-Public Use
  Company Number: US-PFIZER INC-2014246224

PATIENT
  Age: 71 Year
  Sex: Male

DRUGS (2)
  1. TRILEPTAL [Suspect]
     Active Substance: OXCARBAZEPINE
  2. SULFASALAZINE. [Suspect]
     Active Substance: SULFASALAZINE

REACTIONS (1)
  - Drug hypersensitivity [Unknown]
